FAERS Safety Report 24025474 (Version 1)
Quarter: 2024Q2

REPORT INFORMATION
  Report Type: Spontaneous
  Country: IT (occurrence: IT)
  Receive Date: 20240628
  Receipt Date: 20240628
  Transmission Date: 20240716
  Serious: No
  Sender: FDA-Public Use
  Company Number: None

PATIENT
  Age: 82 Year
  Sex: Male

DRUGS (4)
  1. ALECENSA [Suspect]
     Active Substance: ALECTINIB HYDROCHLORIDE
     Indication: Lung adenocarcinoma
     Dosage: FROM 19/12/22 TO 13/02/23: 600 M TWICE A DAY?FROM 02/13/23 TO 04/11/23: 450 MG TWICE A DAY?FROM 11/0
     Route: 065
     Dates: start: 20221219, end: 20230213
  2. ALECENSA [Suspect]
     Active Substance: ALECTINIB HYDROCHLORIDE
     Route: 065
     Dates: start: 20230213, end: 20230411
  3. ALECENSA [Suspect]
     Active Substance: ALECTINIB HYDROCHLORIDE
     Route: 065
     Dates: start: 20230411, end: 20230723
  4. ALECENSA [Suspect]
     Active Substance: ALECTINIB HYDROCHLORIDE
     Route: 065
     Dates: start: 20231002

REACTIONS (2)
  - Hypertransaminasaemia [Recovering/Resolving]
  - Blood creatine increased [Recovering/Resolving]

NARRATIVE: CASE EVENT DATE: 20230210
